FAERS Safety Report 12105169 (Version 1)
Quarter: 2016Q1

REPORT INFORMATION
  Report Type: Spontaneous
  Country: US (occurrence: US)
  Receive Date: 20160223
  Receipt Date: 20160223
  Transmission Date: 20160526
  Serious: No
  Sender: FDA-Public Use
  Company Number: US-GLAXOSMITHKLINE-US2016025644

PATIENT
  Age: 89 Year
  Sex: Male

DRUGS (1)
  1. NICODERM CQ [Suspect]
     Active Substance: NICOTINE
     Indication: TOBACCO USER
     Dosage: 21 MG, UNK
     Dates: start: 201602, end: 201602

REACTIONS (1)
  - Drug ineffective for unapproved indication [Unknown]
